FAERS Safety Report 12174087 (Version 6)
Quarter: 2016Q4

REPORT INFORMATION
  Report Type: Spontaneous
  Country: US (occurrence: US)
  Receive Date: 20160314
  Receipt Date: 20161214
  Transmission Date: 20170207
  Serious: Yes (Other)
  Sender: FDA-Public Use
  Company Number: PHEH2016US005794

PATIENT
  Sex: Female
  Weight: 97.51 kg

DRUGS (4)
  1. ZOFRAN [Suspect]
     Active Substance: ONDANSETRON HYDROCHLORIDE
     Indication: VOMITING IN PREGNANCY
     Route: 048
  2. ONDANSETRON HYDROCHLORIDE. [Suspect]
     Active Substance: ONDANSETRON HYDROCHLORIDE
     Indication: VOMITING IN PREGNANCY
     Dosage: 8 MG, QID
     Route: 048
     Dates: start: 20140722, end: 201408
  3. ZOFRAN ODT [Suspect]
     Active Substance: ONDANSETRON HYDROCHLORIDE
     Indication: VOMITING IN PREGNANCY
     Dosage: 1 DF, Q6H
     Route: 048
     Dates: start: 20140722, end: 20150408
  4. ONDANSETRON HYDROCHLORIDE. [Suspect]
     Active Substance: ONDANSETRON HYDROCHLORIDE
     Dosage: 8 MG, QID
     Route: 048
     Dates: start: 20140908, end: 20141008

REACTIONS (10)
  - Anxiety [Unknown]
  - Maternal exposure during pregnancy [Unknown]
  - Injury [Unknown]
  - Hypothyroidism [Unknown]
  - Insomnia [Unknown]
  - Papilloma viral infection [Unknown]
  - Product use issue [Unknown]
  - Emotional distress [Unknown]
  - Nephrolithiasis [Unknown]
  - Pain [Unknown]
